FAERS Safety Report 6020190-7 (Version None)
Quarter: 2008Q4

REPORT INFORMATION
  Report Type: 
  Country: None (occurrence: None)
  Receive Date: 20081226
  Receipt Date: 20081216
  Transmission Date: 20090506
  Serious: Yes (Other)
  Sender: FDA-Public Use
  Company Number: US-ROCHE-603717

PATIENT
  Age: 67 Year
  Sex: Female

DRUGS (5)
  1. BONIVA [Suspect]
     Indication: OSTEOPENIA
     Dosage: INTERRUPTED DUE TO COLORECTAL SURGERY
     Route: 065
     Dates: start: 20060101
  2. BONIVA [Suspect]
     Route: 065
     Dates: start: 20081001
  3. PREMARIN [Concomitant]
  4. VITAMINE D [Concomitant]
  5. CALCIUM SUPPLEMENTS [Concomitant]

REACTIONS (3)
  - COLON ADENOMA [None]
  - CYSTITIS [None]
  - DIARRHOEA [None]
